FAERS Safety Report 5271326-7 (Version None)
Quarter: 2007Q1

REPORT INFORMATION
  Report Type: 
  Country: None (occurrence: None)
  Receive Date: 20070321
  Receipt Date: 20070314
  Transmission Date: 20070707
  Serious: Yes (Hospitalization)
  Sender: FDA-Public Use
  Company Number: AU-GLAXOSMITHKLINE-B0462755A

PATIENT
  Sex: Female

DRUGS (1)
  1. NICABATE CQ CLEAR 21MG [Suspect]
     Indication: SMOKING CESSATION THERAPY
     Route: 062
     Dates: start: 20070310, end: 20070310

REACTIONS (1)
  - HALLUCINATION [None]
